FAERS Safety Report 5742780-9 (Version None)
Quarter: 2008Q2

REPORT INFORMATION
  Report Type: 
  Country: None (occurrence: None)
  Receive Date: 20080519
  Receipt Date: 20080513
  Transmission Date: 20081010
  Serious: Yes (Hospitalization, Other)
  Sender: FDA-Public Use
  Company Number: US-MERCK-0705USA00760

PATIENT
  Age: 43 Year
  Sex: Female

DRUGS (4)
  1. FOSAMAX [Suspect]
     Indication: OSTEOPENIA
     Route: 048
     Dates: start: 20000101, end: 20050101
  2. FOSAMAX [Suspect]
     Route: 048
     Dates: start: 20000301, end: 20000901
  3. CELEBREX [Concomitant]
     Route: 065
  4. FOSAMAX PLUS D [Suspect]
     Indication: OSTEOPENIA
     Route: 048
     Dates: start: 20051207, end: 20061012

REACTIONS (7)
  - ANXIETY [None]
  - CELLULITIS [None]
  - MORTON'S NEUROMA [None]
  - NECK INJURY [None]
  - OSTEONECROSIS [None]
  - SINUSITIS [None]
  - TOOTH ABSCESS [None]
